FAERS Safety Report 17037482 (Version 1)
Quarter: 2019Q4

REPORT INFORMATION
  Report Type: Report from Study
  Country: US (occurrence: US)
  Receive Date: 20191115
  Receipt Date: 20191115
  Transmission Date: 20200122
  Serious: Yes (Other)
  Sender: FDA-Public Use
  Company Number: US-JNJFOC-20190939085

PATIENT
  Age: 64 Year
  Sex: Male

DRUGS (2)
  1. ELIQUIS [Suspect]
     Active Substance: APIXABAN
     Indication: ATRIAL FIBRILLATION
     Route: 065
  2. IMBRUVICA [Suspect]
     Active Substance: IBRUTINIB
     Indication: MANTLE CELL LYMPHOMA
     Dosage: 560 MG, QD
     Route: 048
     Dates: start: 20190917

REACTIONS (8)
  - Atrial fibrillation [Unknown]
  - Migraine [Not Recovered/Not Resolved]
  - Scab [Unknown]
  - Visual impairment [Unknown]
  - Oral mucosal eruption [Unknown]
  - Skin haemorrhage [Unknown]
  - Infection [Recovered/Resolved]
  - Bleeding time prolonged [Unknown]

NARRATIVE: CASE EVENT DATE: 201909
